FAERS Safety Report 16576539 (Version 1)
Quarter: 2019Q3

REPORT INFORMATION
  Report Type: Other
  Country: US (occurrence: US)
  Receive Date: 20190716
  Receipt Date: 20190716
  Transmission Date: 20191004
  Serious: No
  Sender: FDA-Public Use
  Company Number: US-SWEDISH ORPHAN BIOVITRUM-2019US0299

PATIENT
  Sex: Female

DRUGS (15)
  1. ENVARSUS XR [Concomitant]
     Active Substance: TACROLIMUS
  2. TACROLIMUS. [Concomitant]
     Active Substance: TACROLIMUS
  3. VYNANSE [Concomitant]
  4. BUSPIRONE [Concomitant]
     Active Substance: BUSPIRONE HYDROCHLORIDE
  5. ROSUVASTATIN. [Concomitant]
     Active Substance: ROSUVASTATIN
  6. MICARDIS [Concomitant]
     Active Substance: TELMISARTAN
  7. LORAZEPAM. [Concomitant]
     Active Substance: LORAZEPAM
  8. TYLACTIN RTD 15 [Concomitant]
  9. VANLAFAXINE [Concomitant]
     Active Substance: VENLAFAXINE HYDROCHLORIDE
  10. NEXPLANON [Concomitant]
     Active Substance: ETONOGESTREL
  11. PREDNISONE. [Concomitant]
     Active Substance: PREDNISONE
  12. ORFADIN [Suspect]
     Active Substance: NITISINONE
     Indication: TYROSINAEMIA
     Route: 048
     Dates: start: 20140717
  13. ORFADIN [Suspect]
     Active Substance: NITISINONE
     Route: 048
     Dates: start: 20160921
  14. CITALOPRAM [Concomitant]
     Active Substance: CITALOPRAM HYDROBROMIDE
  15. METOPROLOL. [Concomitant]
     Active Substance: METOPROLOL

REACTIONS (1)
  - Insomnia [Unknown]
